FAERS Safety Report 25541310 (Version 1)
Quarter: 2025Q3

REPORT INFORMATION
  Report Type: Spontaneous
  Country: EU (occurrence: EU)
  Receive Date: 20250711
  Receipt Date: 20250711
  Transmission Date: 20251021
  Serious: Yes (Hospitalization, Other)
  Sender: ORGANON
  Company Number: EU-ASTRAZENECA-202506GLO024648ES

PATIENT
  Age: 54 Year
  Sex: Male

DRUGS (16)
  1. MIRTAZAPINE [Suspect]
     Active Substance: MIRTAZAPINE
     Route: 065
  2. QUETIAPINE [Suspect]
     Active Substance: QUETIAPINE
     Dates: start: 20230420
  3. TICAGRELOR [Suspect]
     Active Substance: TICAGRELOR
     Route: 065
     Dates: start: 20230420
  4. CLORAZEPATE DIPOTASSIUM [Suspect]
     Active Substance: CLORAZEPATE DIPOTASSIUM
     Route: 065
     Dates: start: 20240522
  5. EZETIMIBE [Concomitant]
     Active Substance: EZETIMIBE
  6. VALSARTAN [Concomitant]
     Active Substance: VALSARTAN
  7. OMEPRAZOLE MAGNESIUM [Concomitant]
     Active Substance: OMEPRAZOLE MAGNESIUM
  8. LEVETIRACETAM [Concomitant]
     Active Substance: LEVETIRACETAM
  9. BIPERIDEN [Concomitant]
     Active Substance: BIPERIDEN
  10. NITROGLYCERIN [Concomitant]
     Active Substance: NITROGLYCERIN
  11. BISOPROLOL [Concomitant]
     Active Substance: BISOPROLOL
  12. CLORAZEPATE DIPOTASSIUM [Concomitant]
     Active Substance: CLORAZEPATE DIPOTASSIUM
  13. FUROSEMIDE [Concomitant]
     Active Substance: FUROSEMIDE
  14. EMPAGLIFLOZIN [Concomitant]
     Active Substance: EMPAGLIFLOZIN
  15. ATORVASTATIN [Concomitant]
     Active Substance: ATORVASTATIN
  16. ASPIRIN [Concomitant]
     Active Substance: ASPIRIN

REACTIONS (2)
  - Anaemia [Recovered/Resolved]
  - Ileus paralytic [Recovered/Resolved]

NARRATIVE: CASE EVENT DATE: 20250208
